FAERS Safety Report 20999959 (Version 2)
Quarter: 2022Q3

REPORT INFORMATION
  Report Type: Report from Study
  Country: FR (occurrence: FR)
  Receive Date: 20220623
  Receipt Date: 20220705
  Transmission Date: 20221026
  Serious: Yes (Other)
  Sender: FDA-Public Use
  Company Number: FR-GILEAD-2022-0581708

PATIENT
  Sex: Female
  Weight: 71 kg

DRUGS (4)
  1. SACITUZUMAB GOVITECAN [Suspect]
     Active Substance: SACITUZUMAB GOVITECAN
     Indication: Triple negative breast cancer
     Dosage: 10 MG/KG, C1D1 AND C1D8
     Route: 042
     Dates: start: 20220120, end: 20220122
  2. SACITUZUMAB GOVITECAN [Suspect]
     Active Substance: SACITUZUMAB GOVITECAN
     Dosage: 10 MG/KG, C2D1 AND C2 D8
     Route: 042
     Dates: start: 20220210, end: 20220217
  3. SACITUZUMAB GOVITECAN [Suspect]
     Active Substance: SACITUZUMAB GOVITECAN
     Dosage: 10 MG/KG, C5D1, C5D8 INTERRUPTED
     Route: 042
     Dates: start: 20220414, end: 20220421
  4. SACITUZUMAB GOVITECAN [Suspect]
     Active Substance: SACITUZUMAB GOVITECAN
     Dosage: 10 MG/KG, CYCLE7
     Route: 042
     Dates: start: 20220602, end: 20220609

REACTIONS (2)
  - Neurosurgery [Unknown]
  - Off label use [Unknown]
